FAERS Safety Report 13904958 (Version 2)
Quarter: 2017Q3

REPORT INFORMATION
  Report Type: Report from Study
  Country: AU (occurrence: AU)
  Receive Date: 20170825
  Receipt Date: 20170911
  Transmission Date: 20171127
  Serious: Yes (Life-Threatening, Hospitalization, Disabling)
  Sender: FDA-Public Use
  Company Number: AU-ROCHE-1960800

PATIENT
  Age: 53 Year
  Sex: Male

DRUGS (45)
  1. PREDNISOLONE. [Suspect]
     Active Substance: PREDNISOLONE
     Indication: VASCULITIS
     Route: 048
     Dates: start: 20170111
  2. DARBEPOETIN ALFA [Concomitant]
     Active Substance: DARBEPOETIN ALFA
     Indication: VASCULITIS
     Route: 058
     Dates: start: 20170301
  3. METOPROLOL. [Concomitant]
     Active Substance: METOPROLOL
     Route: 048
     Dates: end: 20170728
  4. ENOXAPARIN [Concomitant]
     Active Substance: ENOXAPARIN
     Route: 065
     Dates: start: 20170813
  5. FENTANYL. [Concomitant]
     Active Substance: FENTANYL
     Route: 065
     Dates: start: 20170808
  6. METARAMINOL [Concomitant]
     Active Substance: METARAMINOL
     Route: 065
     Dates: start: 20170808
  7. PROPOFOL. [Concomitant]
     Active Substance: PROPOFOL
     Route: 065
     Dates: start: 20170808
  8. HARTMANN^S [Concomitant]
     Route: 065
     Dates: start: 20170808
  9. PREDNISOLONE. [Suspect]
     Active Substance: PREDNISOLONE
     Route: 048
     Dates: start: 20170703
  10. FLUCLOXACILLIN [Concomitant]
     Active Substance: FLUCLOXACILLIN
     Route: 065
     Dates: start: 20170731, end: 20170804
  11. NEOSTIGMINE [Concomitant]
     Active Substance: NEOSTIGMINE
     Route: 065
     Dates: start: 20170808
  12. MYCOPHENOLATE MOFETIL. [Suspect]
     Active Substance: MYCOPHENOLATE MOFETIL
     Route: 048
     Dates: start: 201611, end: 20170621
  13. METOPROLOL. [Concomitant]
     Active Substance: METOPROLOL
     Dosage: HEAR RATE DEPENDENT 2DOSES RECEIVED ON 01/AUG/2017 AND 02/AUG/2017
     Route: 065
  14. TROPICAMIDE. [Concomitant]
     Active Substance: TROPICAMIDE
     Dosage: 1 DROP
     Route: 065
  15. REMIFENTANIL [Concomitant]
     Active Substance: REMIFENTANIL
     Route: 065
     Dates: start: 20170808
  16. DEXAMETHASON [Concomitant]
     Active Substance: DEXAMETHASONE
     Route: 065
     Dates: start: 20170808
  17. DIAZEPAM [Concomitant]
     Dosage: 2.5-5 MG?THREE DOSES TO DATE
     Route: 065
  18. CHLORVESCENT [Concomitant]
     Active Substance: POTASSIUM CHLORIDE
     Route: 065
     Dates: start: 20170729, end: 20170730
  19. COTRIMAZOL [Concomitant]
     Route: 065
  20. INDAPAMIDE. [Concomitant]
     Active Substance: INDAPAMIDE
     Route: 065
  21. MIRTAZAPINE. [Concomitant]
     Active Substance: MIRTAZAPINE
     Route: 065
     Dates: start: 20170811, end: 20170817
  22. ROCURONIUM [Concomitant]
     Active Substance: ROCURONIUM BROMIDE
     Route: 065
     Dates: start: 20170808
  23. MANNITOL. [Concomitant]
     Active Substance: MANNITOL
     Route: 065
     Dates: start: 20170808
  24. CYCLOPHOSPHAMIDE. [Suspect]
     Active Substance: CYCLOPHOSPHAMIDE
     Indication: VASCULITIS
     Dosage: 4 DOSES
     Route: 065
     Dates: start: 20160521, end: 20160812
  25. ENOXAPARIN [Concomitant]
     Active Substance: ENOXAPARIN
     Route: 065
     Dates: start: 20170802, end: 20170806
  26. LEVETIRACETAM. [Concomitant]
     Active Substance: LEVETIRACETAM
     Route: 065
     Dates: start: 20170728
  27. CEPHAZOLIN [Concomitant]
     Active Substance: CEFAZOLIN
     Route: 065
     Dates: start: 20170808
  28. METOPROLOL. [Concomitant]
     Active Substance: METOPROLOL
     Indication: VASCULITIS
     Route: 048
  29. AZATHIOPRINE [Concomitant]
     Route: 048
     Dates: start: 20161103, end: 20161117
  30. ARANESP [Concomitant]
     Active Substance: DARBEPOETIN ALFA
     Route: 065
  31. MIRTAZAPINE. [Concomitant]
     Active Substance: MIRTAZAPINE
     Dosage: DOSE INCREASED
     Route: 065
     Dates: start: 20170818
  32. BACTRIM DS [Concomitant]
     Route: 065
     Dates: start: 20170816
  33. RITUXIMAB. [Suspect]
     Active Substance: RITUXIMAB
     Indication: VASCULITIS
     Dosage: ON 27/APR/2016, HE RECEIVED HIS LAST DOSE OF RITUXIMAB.
     Route: 042
     Dates: start: 20160406
  34. MYCOPHENOLATE MOFETIL. [Suspect]
     Active Substance: MYCOPHENOLATE MOFETIL
     Indication: VASCULITIS
     Route: 048
     Dates: start: 20170301
  35. METOPROLOL. [Concomitant]
     Active Substance: METOPROLOL
     Dosage: DOSE INCREASED
     Route: 065
  36. SODIUM VALPROATE [Concomitant]
     Active Substance: VALPROATE SODIUM
     Dosage: 2X1 GM IV ACCESS ON 29/JUL/2017
     Route: 065
  37. SODIUM VALPROATE [Concomitant]
     Active Substance: VALPROATE SODIUM
     Route: 065
     Dates: start: 20170730
  38. MIDAZOLAM ROCHE UNSPEC. [Concomitant]
     Dosage: ONE DOSE
     Route: 065
     Dates: start: 20170729
  39. ONDANSETRON [Concomitant]
     Active Substance: ONDANSETRON
     Route: 065
     Dates: start: 20170808
  40. MYCOPHENOLATE MOFETIL. [Suspect]
     Active Substance: MYCOPHENOLATE MOFETIL
     Route: 048
     Dates: start: 20170727
  41. CIPROFLOXACIN. [Concomitant]
     Active Substance: CIPROFLOXACIN
     Route: 048
     Dates: start: 20170721
  42. NORMAL SALINE [Concomitant]
     Active Substance: SODIUM CHLORIDE
     Route: 065
  43. OXYCODON [Concomitant]
     Active Substance: OXYCODONE
     Dosage: ONE DOSE ON 08/AUG/2017
     Route: 065
  44. PHENYLEPHRINE [Concomitant]
     Active Substance: PHENYLEPHRINE\PHENYLEPHRINE HYDROCHLORIDE
     Dosage: 1 DROP
     Route: 065
  45. GLYCOPYRROLATE. [Concomitant]
     Active Substance: GLYCOPYRROLATE
     Route: 065
     Dates: start: 20170808

REACTIONS (2)
  - Escherichia urinary tract infection [Not Recovered/Not Resolved]
  - Progressive multifocal leukoencephalopathy [Not Recovered/Not Resolved]

NARRATIVE: CASE EVENT DATE: 20170702
